FAERS Safety Report 8325621-5 (Version None)
Quarter: 2012Q2

REPORT INFORMATION
  Report Type: 
  Country: None (occurrence: None)
  Receive Date: 20120501
  Receipt Date: 20100518
  Transmission Date: 20120825
  Serious: No
  Sender: FDA-Public Use
  Company Number: US-TEVA-2010002843

PATIENT
  Sex: Female
  Weight: 68.1 kg

DRUGS (5)
  1. NUVIGIL [Suspect]
     Indication: EHLERS-DANLOS SYNDROME
     Dosage: 250 MILLIGRAM;
     Route: 048
     Dates: start: 20100428
  2. CYMBALTA [Concomitant]
  3. RANITIDINE [Concomitant]
  4. COLESTIPOL HYDROCHLORIDE [Concomitant]
  5. CADUET [Concomitant]

REACTIONS (2)
  - TOBACCO ABUSE [None]
  - DRUG INEFFECTIVE FOR UNAPPROVED INDICATION [None]
